FAERS Safety Report 10366387 (Version 5)
Quarter: 2015Q1

REPORT INFORMATION
  Report Type: Report from Study
  Country: US (occurrence: US)
  Receive Date: 20140806
  Receipt Date: 20150303
  Transmission Date: 20150720
  Serious: Yes (Other)
  Sender: FDA-Public Use
  Company Number: US-SA-2014SA024600

PATIENT
  Age: 43 Year
  Sex: Female

DRUGS (8)
  1. AUBAGIO [Suspect]
     Active Substance: TERIFLUNOMIDE
     Indication: MULTIPLE SCLEROSIS
     Route: 048
     Dates: start: 20140212, end: 20150123
  2. CYCLOBENZAPRINE [Concomitant]
     Active Substance: CYCLOBENZAPRINE
     Indication: RHEUMATOID ARTHRITIS
     Dates: start: 201302
  3. GABAPENTIN. [Concomitant]
     Active Substance: GABAPENTIN
     Indication: NEUROPATHY PERIPHERAL
     Dates: start: 201305
  4. TRIAMTERENE. [Concomitant]
     Active Substance: TRIAMTERENE
     Indication: BLOOD PRESSURE
     Dates: start: 201302
  5. LEVOTHYROXINE [Concomitant]
     Active Substance: LEVOTHYROXINE
     Indication: HYPOTHYROIDISM
     Dates: start: 201308
  6. VITAMIN D [Concomitant]
     Active Substance: CHOLECALCIFEROL
     Indication: VITAMIN D DEFICIENCY
     Dosage: DOSE:400 UNIT(S)
     Dates: start: 201308
  7. GABAPENTIN. [Concomitant]
     Active Substance: GABAPENTIN
     Indication: SCIATICA
     Dates: start: 201305
  8. PRAVASTATIN [Concomitant]
     Active Substance: PRAVASTATIN\PRAVASTATIN SODIUM
     Indication: BLOOD CHOLESTEROL INCREASED
     Dates: start: 201308

REACTIONS (16)
  - Swelling [Unknown]
  - Nausea [Unknown]
  - Hypoaesthesia [Not Recovered/Not Resolved]
  - Rheumatoid arthritis [Unknown]
  - Dysarthria [Unknown]
  - Hypertension [Unknown]
  - Paraesthesia [Unknown]
  - Drug ineffective [Unknown]
  - Paraesthesia [Recovered/Resolved]
  - Abdominal pain [Unknown]
  - Headache [Not Recovered/Not Resolved]
  - Vision blurred [Unknown]
  - Nasopharyngitis [Unknown]
  - Epistaxis [Unknown]
  - Multiple sclerosis relapse [Recovering/Resolving]
  - Dysphagia [Unknown]

NARRATIVE: CASE EVENT DATE: 2014
